FAERS Safety Report 9230675 (Version 2)
Quarter: 2013Q4

REPORT INFORMATION
  Report Type: Spontaneous
  Country: BR (occurrence: BR)
  Receive Date: 20130415
  Receipt Date: 20131017
  Transmission Date: 20140711
  Serious: Yes (Other)
  Sender: FDA-Public Use
  Company Number: BR-AMGEN-BRASP2013025554

PATIENT
  Age: 62 Year
  Sex: Female
  Weight: 55 kg

DRUGS (9)
  1. ENBREL [Suspect]
     Indication: RHEUMATOID ARTHRITIS
     Dosage: 50 MG, WEEKLY
     Route: 058
     Dates: start: 20130104
  2. LOSARTAN [Concomitant]
     Indication: HYPERTENSION
     Dosage: 2 TABLETS OF 50 MG, DAILY
     Dates: start: 2010
  3. ATENOLOL [Concomitant]
     Dosage: 1 TABLET OF 25 MG, DAILY
  4. DIAMICRON [Concomitant]
     Indication: DIABETES MELLITUS
     Dosage: 1 TABLET OF 60 MG, DAILY
     Dates: start: 2012
  5. GLIFAGE [Concomitant]
     Dosage: 500 MG, 2X/DAY
  6. PANTOPRAZOL [Concomitant]
     Dosage: 20 MG, AS NEEDED
  7. LEXOTAN [Concomitant]
     Dosage: UNK , AS NEEDED
  8. METFORMIN HYDROCHLORIDE [Concomitant]
     Dosage: UNK
     Dates: start: 2012
  9. OMEPRAZOLE [Concomitant]
     Dosage: UNK

REACTIONS (9)
  - Hypertension [Unknown]
  - Eye disorder [Unknown]
  - Heart rate increased [Unknown]
  - Vision blurred [Not Recovered/Not Resolved]
  - Nausea [Not Recovered/Not Resolved]
  - Injection site erythema [Not Recovered/Not Resolved]
  - Injection site pain [Not Recovered/Not Resolved]
  - Injection site warmth [Not Recovered/Not Resolved]
  - Injection site pruritus [Not Recovered/Not Resolved]
